FAERS Safety Report 5367155-6 (Version None)
Quarter: 2007Q2

REPORT INFORMATION
  Report Type: 
  Country: None (occurrence: None)
  Receive Date: 20070622
  Receipt Date: 20070117
  Transmission Date: 20071010
  Serious: Yes (Hospitalization, Other)
  Sender: FDA-Public Use
  Company Number: US-BRISTOL-MYERS SQUIBB COMPANY-13656202

PATIENT
  Sex: Female

DRUGS (1)
  1. SINEMET [Suspect]
     Route: 048

REACTIONS (2)
  - DYSPNOEA [None]
  - RASH [None]
